FAERS Safety Report 5164380-4 (Version None)
Quarter: 2006Q4

REPORT INFORMATION
  Report Type: 
  Country: None (occurrence: None)
  Receive Date: 20061205
  Receipt Date: 20061201
  Transmission Date: 20070319
  Serious: Yes (Life-Threatening)
  Sender: FDA-Public Use
  Company Number: GB-NOVOPROD-258958

PATIENT
  Weight: 65 kg

DRUGS (2)
  1. LEVEMIR [Suspect]
     Indication: DIABETES MELLITUS INSULIN-DEPENDENT
     Dosage: 300 IU, QD
     Route: 058
     Dates: start: 20061201, end: 20061201
  2. NOVORAPID [Suspect]
     Indication: DIABETES MELLITUS INSULIN-DEPENDENT
     Dosage: 900 IU, QD
     Route: 058
     Dates: start: 20061201, end: 20061201

REACTIONS (1)
  - SUICIDE ATTEMPT [None]
